FAERS Safety Report 16914783 (Version 3)
Quarter: 2020Q1

REPORT INFORMATION
  Report Type: Spontaneous
  Country: US (occurrence: US)
  Receive Date: 20191014
  Receipt Date: 20200207
  Transmission Date: 20200409
  Serious: Yes (Other)
  Sender: FDA-Public Use
  Company Number: US-GLAXOSMITHKLINE-US2019AMR180860

PATIENT
  Sex: Female
  Weight: 74.83 kg

DRUGS (1)
  1. ANORO ELLIPTA [Suspect]
     Active Substance: UMECLIDINIUM BROMIDE\VILANTEROL TRIFENATATE
     Indication: PRODUCT USED FOR UNKNOWN INDICATION
     Dosage: UNK
     Route: 065
     Dates: start: 20190816

REACTIONS (5)
  - Heart rate irregular [Unknown]
  - Adverse drug reaction [Unknown]
  - Chest discomfort [Unknown]
  - Hypothyroidism [Unknown]
  - Condition aggravated [Unknown]
